FAERS Safety Report 21689773 (Version 1)
Quarter: 2022Q4

REPORT INFORMATION
  Report Type: Report from Study
  Country: US (occurrence: US)
  Receive Date: 20221206
  Receipt Date: 20221206
  Transmission Date: 20230113
  Serious: No
  Sender: FDA-Public Use
  Company Number: US-ABBVIE-4190820

PATIENT
  Age: 58 Year
  Sex: Female

DRUGS (4)
  1. HUMIRA [Suspect]
     Active Substance: ADALIMUMAB
     Indication: Rheumatoid arthritis
     Dosage: CF 40MG
     Route: 058
     Dates: start: 20221021
  2. Moderna [Concomitant]
     Indication: COVID-19 immunisation
     Dosage: 1ST DOSE:2021-01-02
     Route: 030
     Dates: start: 20210102, end: 20210102
  3. Moderna [Concomitant]
     Indication: COVID-19 immunisation
     Dosage: 2ND
     Dates: start: 20210202, end: 20210202
  4. Moderna [Concomitant]
     Indication: COVID-19 immunisation
     Dosage: 3RD
     Route: 030
     Dates: start: 20211102, end: 20211102

REACTIONS (2)
  - Injection site pruritus [Recovered/Resolved]
  - Injection site bruising [Recovered/Resolved]

NARRATIVE: CASE EVENT DATE: 20221103
